FAERS Safety Report 13922349 (Version 1)
Quarter: 2017Q3

REPORT INFORMATION
  Report Type: Report from Study
  Country: BR (occurrence: BR)
  Receive Date: 20170830
  Receipt Date: 20170830
  Transmission Date: 20171127
  Serious: Yes (Hospitalization, Other)
  Sender: FDA-Public Use
  Company Number: PHHY2017BR123852

PATIENT
  Age: 82 Year
  Sex: Female

DRUGS (2)
  1. IMATINIB [Suspect]
     Active Substance: IMATINIB
     Dosage: 100 MG, TID
     Route: 048
  2. IMATINIB [Suspect]
     Active Substance: IMATINIB
     Indication: CHRONIC MYELOID LEUKAEMIA
     Dosage: 400 MG, UNK
     Route: 048

REACTIONS (13)
  - Syncope [Unknown]
  - Cerebrovascular accident [Unknown]
  - Kidney infection [Unknown]
  - Malaise [Unknown]
  - Mobility decreased [Unknown]
  - Myocardial infarction [Unknown]
  - Monoplegia [Unknown]
  - Blindness [Unknown]
  - Constipation [Unknown]
  - Abdominal pain upper [Unknown]
  - Vomiting [Unknown]
  - Diarrhoea [Recovered/Resolved]
  - Renal impairment [Unknown]
